FAERS Safety Report 15778789 (Version 5)
Quarter: 2019Q1

REPORT INFORMATION
  Report Type: Report from Study
  Country: CA (occurrence: CA)
  Receive Date: 20190101
  Receipt Date: 20190130
  Transmission Date: 20190417
  Serious: Yes (Other)
  Sender: FDA-Public Use
  Company Number: CA-ROCHE-2238238

PATIENT
  Age: 36 Year
  Sex: Female

DRUGS (7)
  1. AMITRIPTYLINE [Concomitant]
     Active Substance: AMITRIPTYLINE
     Dosage: SINCE FEW YEARS
     Route: 065
  2. METHYLPREDNISOLONE. [Concomitant]
     Active Substance: METHYLPREDNISOLONE
  3. GABAPENTIN. [Concomitant]
     Active Substance: GABAPENTIN
     Dosage: SINCE FEW YEARS
     Route: 065
  4. OCREVUS [Suspect]
     Active Substance: OCRELIZUMAB
     Indication: RELAPSING-REMITTING MULTIPLE SCLEROSIS
     Dosage: AT DAY 0 AND 14, THEN 600 MG EVERY 6 MONTH
     Route: 042
     Dates: start: 20170625
  5. BIOTIN [Concomitant]
     Active Substance: BIOTIN
     Route: 065
  6. DIPHENHYDRAMINE. [Concomitant]
     Active Substance: DIPHENHYDRAMINE
  7. ACETAMINOPHEN. [Concomitant]
     Active Substance: ACETAMINOPHEN

REACTIONS (10)
  - Fatigue [Unknown]
  - Infusion related reaction [Not Recovered/Not Resolved]
  - Sensory disturbance [Unknown]
  - Vein disorder [Unknown]
  - Speech disorder [Unknown]
  - Blood pressure increased [Recovered/Resolved]
  - Hypoaesthesia [Unknown]
  - Stress [Not Recovered/Not Resolved]
  - Pneumonia [Recovered/Resolved]
  - Feeling hot [Recovered/Resolved]

NARRATIVE: CASE EVENT DATE: 20170710
